FAERS Safety Report 7912941-9 (Version None)
Quarter: 2011Q4

REPORT INFORMATION
  Report Type: 
  Country: None (occurrence: None)
  Receive Date: 20111114
  Receipt Date: 20111107
  Transmission Date: 20120403
  Serious: Yes (Other)
  Sender: FDA-Public Use
  Company Number: AR-GENZYME-CLOF-1001750

PATIENT
  Sex: Female
  Weight: 20 kg

DRUGS (15)
  1. CYTARABINE [Suspect]
     Indication: ACUTE MONOCYTIC LEUKAEMIA
     Dosage: 1 CYCLE FLAG-IDA
     Route: 065
  2. NEUPOGEN [Suspect]
     Dosage: 1ST CYCLE FLAG
     Route: 065
  3. CYCLOPHOSPHAMIDE [Suspect]
     Indication: ACUTE MONOCYTIC LEUKAEMIA
     Dosage: 30 MG, QDX5
     Route: 042
     Dates: start: 20110713
  4. ETOPOSIDE [Suspect]
     Indication: ACUTE MONOCYTIC LEUKAEMIA
     Dosage: 80 MG, QDX5
     Route: 042
     Dates: start: 20110713
  5. FLUDARA [Suspect]
     Dosage: 2ND CYCLE FLAG
     Route: 065
  6. CYTARABINE [Suspect]
     Dosage: UNK
     Route: 065
  7. CLADRIBINE [Suspect]
     Indication: ACUTE MONOCYTIC LEUKAEMIA
     Dosage: UNK
     Route: 065
  8. CYTARABINE [Suspect]
     Dosage: 1ST CYCLE FLAG
     Route: 065
  9. NEUPOGEN [Suspect]
     Dosage: 2ND CYCLE FLAG
     Route: 065
  10. FLUDARA [Suspect]
     Indication: ACUTE MONOCYTIC LEUKAEMIA
     Dosage: 1 CYCLE FLAG-IDA
     Route: 065
  11. FLUDARA [Suspect]
     Dosage: 1ST CYCLE FLAG
     Route: 065
  12. CYTARABINE [Suspect]
     Dosage: 2ND CYCLE FLAG
     Route: 065
  13. NEUPOGEN [Suspect]
     Indication: ACUTE MONOCYTIC LEUKAEMIA
     Dosage: 1 CYCLE FLAG-IDA
     Route: 065
  14. IDARUBICIN HCL [Suspect]
     Indication: ACUTE MONOCYTIC LEUKAEMIA
     Dosage: 1 CYCLE FLAG-IDA
     Route: 065
  15. CLOLAR [Suspect]
     Indication: ACUTE MONOCYTIC LEUKAEMIA
     Dosage: 30 MG, QDX5
     Route: 042
     Dates: start: 20110713

REACTIONS (1)
  - ACUTE MONOCYTIC LEUKAEMIA [None]
